FAERS Safety Report 6430893-8 (Version None)
Quarter: 2009Q4

REPORT INFORMATION
  Report Type: 
  Country: None (occurrence: None)
  Receive Date: 20091106
  Receipt Date: 20091104
  Transmission Date: 20100525
  Serious: Yes (Hospitalization)
  Sender: FDA-Public Use
  Company Number: IT-BRISTOL-MYERS SQUIBB COMPANY-14563076

PATIENT
  Age: 62 Year
  Sex: Female

DRUGS (3)
  1. SPRYCEL [Suspect]
     Indication: ACUTE LYMPHOCYTIC LEUKAEMIA
     Route: 048
     Dates: start: 20080827, end: 20090210
  2. ZEFFIX [Concomitant]
     Dosage: 1 DOSAGE FORM = 1 TAB
     Route: 048
  3. MEPRAL [Concomitant]
     Dosage: 1 DOSAGE FORM = 1 TAB
     Route: 048

REACTIONS (1)
  - THROMBOTIC MICROANGIOPATHY [None]
